FAERS Safety Report 22265382 (Version 2)
Quarter: 2023Q2

REPORT INFORMATION
  Report Type: Spontaneous
  Country: ES (occurrence: ES)
  Receive Date: 20230428
  Receipt Date: 20230503
  Transmission Date: 20230722
  Serious: Yes (Other)
  Sender: FDA-Public Use
  Company Number: None

PATIENT
  Age: 35 Year
  Sex: Male

DRUGS (6)
  1. CISPLATIN [Suspect]
     Active Substance: CISPLATIN
     Indication: Germ cell neoplasm
     Dosage: DOSE: 39.4 MG/DAY, DAYS 1-5 OF 21-DAY CYCLE, LAST DOSE BEFORE ADVERSE DRUG REACTION: 31MAR2023
     Route: 042
     Dates: start: 20230213
  2. PEGFILGRASTIM [Suspect]
     Active Substance: PEGFILGRASTIM
     Indication: Chemotherapy cytokine prophylaxis
     Dosage: 6 MG ONCE A WEEK, RECEIVED A DOSE ON 04APR2023
     Route: 058
     Dates: start: 20230328
  3. ETOPOSIDE [Suspect]
     Active Substance: ETOPOSIDE
     Indication: Germ cell neoplasm
     Dosage: 197 MG/DAY, DAYS 1-5 OF 21-DAY CYCLE, LAST DOSE BEFORE ADVERSE DRUG REACTION: 31MAR2023
     Route: 042
     Dates: start: 20230213
  4. BLEOMYCIN [Suspect]
     Active Substance: BLEOMYCIN SULFATE
     Indication: Germ cell neoplasm
     Dosage: RECEIVED A DOSE ON 04APR2023, THE SAME DAY OF THE ADVERSE DRUG REACTION
     Route: 042
     Dates: start: 20230213
  5. ZIEXTENZO [Suspect]
     Active Substance: PEGFILGRASTIM-BMEZ
     Indication: Chemotherapy cytokine prophylaxis
     Dosage: PREVIOUSLY WITH ANOTHER BIOSIMILAR, FIRST DOSE OF ZIEXTENZO ON 04APR2023
     Route: 058
     Dates: start: 20230404, end: 20230404
  6. PEGFILGRASTIM [Concomitant]
     Active Substance: PEGFILGRASTIM
     Indication: Prophylaxis
     Dosage: 6 MG, EVERY 3 WEEKS
     Route: 058
     Dates: start: 20230221, end: 20230314

REACTIONS (2)
  - Syncope [Recovered/Resolved]
  - Malaise [Recovered/Resolved]

NARRATIVE: CASE EVENT DATE: 20230404
